FAERS Safety Report 23381477 (Version 7)
Quarter: 2024Q4

REPORT INFORMATION
  Report Type: Spontaneous
  Country: US (occurrence: US)
  Receive Date: 20240109
  Receipt Date: 20241230
  Transmission Date: 20250115
  Serious: Yes (Other)
  Sender: BRISTOL-MYERS SQUIBB COMPANY
  Company Number: US-BRISTOL-MYERS SQUIBB COMPANY-2024-003662

PATIENT
  Age: 74 Year
  Sex: Female

DRUGS (5)
  1. POMALYST [Suspect]
     Active Substance: POMALIDOMIDE
     Indication: Plasma cell myeloma
     Dosage: TAKE 1 CAPSULE BY MOUTH WHOLE WITH WATER, WITH OR WITHOUT FOOD AT THE SAME TIME DAILY ON DAYS 1-21 O
     Route: 048
     Dates: start: 20221205
  2. POMALYST [Suspect]
     Active Substance: POMALIDOMIDE
     Dosage: TAKE 1 CAPSULE BY MOUTH WHOLE W/ WATER, W/ OR W/O ?FOOD AT ABOUT THE SAME TIME DAILY ON DAYS 1-21 OF
     Route: 048
  3. POMALYST [Suspect]
     Active Substance: POMALIDOMIDE
     Dosage: TAKE 1 CAPSULE BY MOUTH WHOLE W/ WATER, W/ OR W/O ?FOOD AT ABOUT THE SAME TIME DAILY ON DAYS 1-21 OF
     Route: 048
  4. POMALYST [Suspect]
     Active Substance: POMALIDOMIDE
     Dosage: TAKE 1 CAPSULE BY MOUTH WHOLE W/ WATER, W/ OR W/O FOOD AT ABOUT THE SAME TIME DAILY ON DAYS 1-21 OF
     Route: 048
  5. DIETARY SUPPLEMENT [Suspect]
     Active Substance: DIETARY SUPPLEMENT
     Indication: Product used for unknown indication

REACTIONS (20)
  - Constipation [Unknown]
  - Diarrhoea [Unknown]
  - Spinal fracture [Unknown]
  - Back pain [Unknown]
  - Headache [Unknown]
  - Nasopharyngitis [Unknown]
  - Sinus pain [Unknown]
  - Rash [Unknown]
  - Contusion [Unknown]
  - Pruritus [Unknown]
  - Haemorrhage [Unknown]
  - Asthenia [Unknown]
  - Hypertension [Unknown]
  - Neuropathy peripheral [Not Recovered/Not Resolved]
  - Lymphadenopathy [Recovered/Resolved]
  - Urinary tract infection [Recovered/Resolved]
  - Fluid retention [Recovered/Resolved]
  - Trichorrhexis [Unknown]
  - Gastrointestinal disorder [Unknown]
  - Dermatitis [Recovered/Resolved]
